FAERS Safety Report 6768584-6 (Version None)
Quarter: 2010Q2

REPORT INFORMATION
  Report Type: 
  Country: None (occurrence: None)
  Receive Date: 20100614
  Receipt Date: 20100602
  Transmission Date: 20101027
  Serious: Yes (Other)
  Sender: FDA-Public Use
  Company Number: JP-PFIZER INC-2010063828

PATIENT
  Age: 55 Year
  Sex: Female
  Weight: 43 kg

DRUGS (1)
  1. SUNITINIB MALATE [Suspect]
     Indication: GASTROINTESTINAL STROMAL TUMOUR
     Dosage: 50 MG, 1X/DAY
     Route: 048
     Dates: start: 20100228, end: 20100310

REACTIONS (3)
  - GINGIVAL SWELLING [None]
  - GINGIVITIS [None]
  - MUSCULOSKELETAL STIFFNESS [None]
